FAERS Safety Report 19458256 (Version 2)
Quarter: 2021Q3

REPORT INFORMATION
  Report Type: Spontaneous
  Country: US (occurrence: US)
  Receive Date: 20210624
  Receipt Date: 20210705
  Transmission Date: 20211014
  Serious: Yes (Hospitalization, Other)
  Sender: FDA-Public Use
  Company Number: US-PFIZER INC-2021695038

PATIENT
  Age: 64 Year
  Sex: Female
  Weight: 99.79 kg

DRUGS (2)
  1. PREMPRO [Suspect]
     Active Substance: ESTROGENS, CONJUGATED\MEDROXYPROGESTERONE ACETATE
     Dosage: UNK, 1X/DAY (STRENGTH : 625/2.5 MG)
  2. PREMPRO [Suspect]
     Active Substance: ESTROGENS, CONJUGATED\MEDROXYPROGESTERONE ACETATE
     Indication: HOT FLUSH
     Dosage: 0.625MG/2.5MG ONE TABLET DAILY BY MOUTH.
     Route: 048

REACTIONS (4)
  - Sciatica [Not Recovered/Not Resolved]
  - Product prescribing error [Unknown]
  - Back disorder [Unknown]
  - Intervertebral disc protrusion [Not Recovered/Not Resolved]

NARRATIVE: CASE EVENT DATE: 202006
